FAERS Safety Report 24175742 (Version 2)
Quarter: 2024Q3

REPORT INFORMATION
  Report Type: Report from Study
  Country: US (occurrence: US)
  Receive Date: 20240805
  Receipt Date: 20240814
  Transmission Date: 20241016
  Serious: Yes (Hospitalization)
  Sender: BOEHRINGER INGELHEIM
  Company Number: US-BoehringerIngelheim-2024-BI-043147

PATIENT
  Age: 80 Year
  Sex: Male
  Weight: 64.6 kg

DRUGS (9)
  1. NINTEDANIB [Suspect]
     Active Substance: NINTEDANIB
     Indication: Interstitial lung disease
     Route: 048
     Dates: start: 20210907
  2. Albuterol (Proventil, Ventolin) 2.5mg/3mL(083% [Concomitant]
     Indication: Interstitial lung disease
     Dosage: STRENGTH: 2.5MG/3ML (0.83%)?4 VIAL NEB
     Dates: start: 2009
  3. MYCOPHENOLIC ACID [Concomitant]
     Active Substance: MYCOPHENOLIC ACID
     Indication: Interstitial lung disease
     Route: 048
     Dates: start: 20090702
  4. Formoterol Fumarate (performist) [Concomitant]
     Indication: Interstitial lung disease
     Dosage: NEB
     Dates: start: 20030119
  5. Formoterol Fumarate (performist) [Concomitant]
     Indication: Bronchiectasis
  6. LASIX [Concomitant]
     Active Substance: FUROSEMIDE
     Indication: Dyspnoea
     Route: 048
     Dates: start: 20190719
  7. CORTEF [Concomitant]
     Active Substance: HYDROCORTISONE
     Indication: Adrenal insufficiency
     Route: 048
     Dates: start: 20210914
  8. GABAPENTIN [Concomitant]
     Active Substance: GABAPENTIN
     Indication: Neck pain
     Route: 048
     Dates: start: 2010
  9. Budesonide (Pulmicort) [Concomitant]
     Indication: Chronic obstructive pulmonary disease
     Dosage: NEB
     Dates: start: 20230412

REACTIONS (1)
  - Cholecystitis acute [Recovered/Resolved]

NARRATIVE: CASE EVENT DATE: 20231121
